FAERS Safety Report 17549503 (Version 4)
Quarter: 2020Q1

REPORT INFORMATION
  Report Type: Report from Study
  Country: AU (occurrence: AU)
  Receive Date: 20200317
  Receipt Date: 20200326
  Transmission Date: 20200409
  Serious: Yes (Life-Threatening, Hospitalization, Other)
  Sender: FDA-Public Use
  Company Number: AU-GLAXOSMITHKLINE-AU2020APC043776

PATIENT
  Sex: Female

DRUGS (2)
  1. MEPOLIZUMAB [Suspect]
     Active Substance: MEPOLIZUMAB
     Indication: ASTHMA
     Dosage: 100 MG
     Route: 058
     Dates: start: 20200113
  2. MEPOLIZUMAB [Suspect]
     Active Substance: MEPOLIZUMAB
     Dosage: 100 MG
     Route: 058
     Dates: start: 20200311

REACTIONS (6)
  - Dyspnoea [Recovering/Resolving]
  - Anaphylactic reaction [Not Recovered/Not Resolved]
  - Speech disorder [Not Recovered/Not Resolved]
  - Lip discolouration [Recovering/Resolving]
  - Wheezing [Recovering/Resolving]
  - General physical health deterioration [Not Recovered/Not Resolved]
